FAERS Safety Report 7700281-2 (Version None)
Quarter: 2011Q3

REPORT INFORMATION
  Report Type: 
  Country: None (occurrence: None)
  Receive Date: 20110822
  Receipt Date: 20110815
  Transmission Date: 20111222
  Serious: Yes (Hospitalization)
  Sender: FDA-Public Use
  Company Number: GB-AMGEN-GBRSP2011011857

PATIENT
  Age: 33 Year
  Sex: Female

DRUGS (6)
  1. NPLATE [Suspect]
     Indication: HAEMATOLOGY TEST ABNORMAL
     Dosage: 1 A?G/KG, UNK
     Route: 058
     Dates: start: 20100420, end: 20100920
  2. RITUXIMAB [Concomitant]
     Indication: HAEMATOLOGY TEST ABNORMAL
  3. DEXAMETHASONE [Concomitant]
     Indication: IDIOPATHIC THROMBOCYTOPENIC PURPURA
     Dosage: UNK
     Route: 048
     Dates: start: 20100907, end: 20101010
  4. LANSOPRAZOLE [Concomitant]
     Dosage: UNK
     Dates: start: 20100907, end: 20100928
  5. TRANEXAMIC ACID [Concomitant]
  6. IMMUNE GLOBULIN (HUMAN) [Concomitant]
     Indication: HAEMATOLOGY TEST ABNORMAL

REACTIONS (3)
  - RASH ERYTHEMATOUS [None]
  - RASH MACULO-PAPULAR [None]
  - PURPURA [None]
